FAERS Safety Report 6272231-X (Version None)
Quarter: 2009Q3

REPORT INFORMATION
  Report Type: 
  Country: None (occurrence: None)
  Receive Date: 20090715
  Receipt Date: 20090701
  Transmission Date: 20100115
  Serious: Yes (Hospitalization)
  Sender: FDA-Public Use
  Company Number: 2008AL009654

PATIENT
  Age: 72 Year
  Sex: Female

DRUGS (22)
  1. DIGOXIN [Suspect]
     Dosage: 0.25MG, DAILY, PO
     Route: 048
     Dates: end: 20080401
  2. SYNTHROID [Concomitant]
  3. AZOR [Concomitant]
  4. ASPIRIN [Concomitant]
  5. PROTONIX [Concomitant]
  6. PRILOSEC [Concomitant]
  7. IRON [Concomitant]
  8. ADVAIR HFA [Concomitant]
  9. ALBUTEROL [Concomitant]
  10. REVATIO [Concomitant]
  11. DIOVAN [Concomitant]
  12. HYDROCHLOROTHIAZIDE [Concomitant]
  13. XANAX [Concomitant]
  14. COUMADIN [Concomitant]
  15. LIDOCAINE [Concomitant]
  16. PREDNISONE TAB [Concomitant]
  17. HYZAAR [Concomitant]
  18. CHANTIX [Concomitant]
  19. AZITHROMYCIN [Concomitant]
  20. SIMUC [Concomitant]
  21. AMOXICILLIN [Concomitant]
  22. AMIODARONE [Concomitant]

REACTIONS (17)
  - ANXIETY [None]
  - ASTHENIA [None]
  - ATRIAL FIBRILLATION [None]
  - ATRIAL FLUTTER [None]
  - COUGH [None]
  - DECREASED ACTIVITY [None]
  - DECREASED APPETITE [None]
  - DIZZINESS [None]
  - EMOTIONAL DISORDER [None]
  - FATIGUE [None]
  - FEAR [None]
  - HYPOXIA [None]
  - MENTAL DISORDER [None]
  - MULTIPLE INJURIES [None]
  - PAIN [None]
  - PULMONARY HYPERTENSION [None]
  - TREMOR [None]
